FAERS Safety Report 5007606-X (Version None)
Quarter: 2006Q2

REPORT INFORMATION
  Report Type: 
  Country: None (occurrence: None)
  Receive Date: 20060518
  Receipt Date: 20060508
  Transmission Date: 20061013
  Serious: Yes (Other)
  Sender: FDA-Public Use
  Company Number: 2004215238GB

PATIENT
  Age: 60 Year
  Sex: Male

DRUGS (4)
  1. ZYVOX [Suspect]
     Indication: STAPHYLOCOCCAL INFECTION
     Dosage: 800 MG (400 MG, 2 IN 1 D), ORAL
     Route: 048
     Dates: start: 20040109, end: 20040126
  2. SIMVASTATIN [Concomitant]
  3. ASPIRIN [Concomitant]
  4. GLICLAZIDE  (GLICLAZIDE) [Concomitant]

REACTIONS (1)
  - TONGUE BLACK HAIRY [None]
